FAERS Safety Report 9217063 (Version 1)
Quarter: 2013Q2

REPORT INFORMATION
  Report Type: Spontaneous
  Country: FR (occurrence: None)
  Receive Date: 20130404
  Receipt Date: 20130404
  Transmission Date: 20140414
  Serious: No
  Sender: FDA-Public Use
  Company Number: AUR-APL-2013-02720

PATIENT
  Age: 78 Year
  Sex: Female

DRUGS (11)
  1. METFORMIN (METFORMIN) [Suspect]
     Indication: TYPE 2 DIABETES MELLITUS
     Route: 048
  2. REVATIO (SILDENAFIL CITRATE) (UNKNOWN) (SILDENAFIL) [Suspect]
     Indication: PULMONARY HYPERTENSION
     Route: 048
  3. REVATIO (SILDENAFIL CITRATE) (UNKNOWN) (SILDENAFIL) [Suspect]
     Indication: SCLERODERMA
     Route: 048
  4. TRACLEER (BOSENTAN) [Suspect]
     Indication: PULMONARY ARTERIAL HYPERTENSION
     Route: 048
  5. TRACLEER (BOSENTAN) [Suspect]
     Indication: SCLERODERMA
     Route: 048
  6. LEVOTHYROX (LEVOTHYROXINE SODIUM) INFUSION [Suspect]
     Indication: HYPOTHYROIDISM
     Route: 048
  7. LEVOTHYROX (LEVOTHYROXINE SODIUM) INFUSION [Suspect]
     Route: 048
  8. LASILIX (FUROSEMIDE) [Suspect]
     Indication: PULMONARY HYPERTENSION
     Route: 048
  9. PREVISCAN [Suspect]
     Indication: PULMONARY HYPERTENSION
     Route: 048
  10. VENTAVIS [Suspect]
     Indication: PULMONARY ARTERIAL HYPERTENSION
     Route: 048
     Dates: start: 201109
  11. VENTAVIS [Suspect]
     Indication: SCLERODERMA
     Route: 048
     Dates: start: 201109

REACTIONS (2)
  - Wound [None]
  - Eosinophilia [None]
